FAERS Safety Report 5960234-1 (Version None)
Quarter: 2008Q4

REPORT INFORMATION
  Report Type: 
  Country: None (occurrence: None)
  Receive Date: 20081120
  Receipt Date: 20081114
  Transmission Date: 20090506
  Serious: Yes (Hospitalization, Other)
  Sender: FDA-Public Use
  Company Number: US-ELI_LILLY_AND_COMPANY-US200810006363

PATIENT
  Sex: Female
  Weight: 143.31 kg

DRUGS (8)
  1. BYETTA [Suspect]
     Indication: TYPE 2 DIABETES MELLITUS
     Dosage: 5 UG, 2/D
     Route: 058
     Dates: start: 20061018, end: 20061031
  2. BYETTA [Suspect]
     Dosage: 10 UG, 2/D
     Route: 058
     Dates: start: 20061101, end: 20081027
  3. LANTUS [Concomitant]
     Indication: TYPE 2 DIABETES MELLITUS
     Dosage: 30 U, 2/D
     Route: 058
  4. LEVEMIR [Concomitant]
     Dosage: 60 U, 2/D
  5. HUMULIN R [Concomitant]
     Dosage: 10 U, 3/D
  6. FUROSEMIDE [Concomitant]
  7. PRAVASTATIN [Concomitant]
  8. TIABENDAZOLE [Concomitant]

REACTIONS (4)
  - ANGINA PECTORIS [None]
  - LIPASE INCREASED [None]
  - PANCREATITIS [None]
  - WEIGHT DECREASED [None]
